FAERS Safety Report 7852435-2 (Version None)
Quarter: 2011Q4

REPORT INFORMATION
  Report Type: 
  Country: None (occurrence: None)
  Receive Date: 20111026
  Receipt Date: 20111018
  Transmission Date: 20120403
  Serious: Yes (Hospitalization)
  Sender: FDA-Public Use
  Company Number: US-GILEAD-2011-0045393

PATIENT

DRUGS (4)
  1. LETAIRIS [Suspect]
     Indication: SICKLE CELL ANAEMIA
  2. LETAIRIS [Suspect]
     Indication: PULMONARY HYPERTENSION
     Dosage: 10 MG, UNK
     Route: 048
     Dates: start: 20090310
  3. REMODULIN [Concomitant]
  4. REVATIO [Concomitant]

REACTIONS (2)
  - SICKLE CELL ANAEMIA [None]
  - FLUID RETENTION [None]
